FAERS Safety Report 18518436 (Version 1)
Quarter: 2020Q4

REPORT INFORMATION
  Report Type: Spontaneous
  Country: RO (occurrence: RO)
  Receive Date: 20201118
  Receipt Date: 20201118
  Transmission Date: 20210114
  Serious: Yes (Hospitalization)
  Sender: FDA-Public Use
  Company Number: RO-ALLERGAN-2044808US

PATIENT
  Sex: Male

DRUGS (11)
  1. AMOXICILLIN. [Suspect]
     Active Substance: AMOXICILLIN
     Indication: PYREXIA
  2. CARBAMAZEPINE. [Suspect]
     Active Substance: CARBAMAZEPINE
     Indication: ALCOHOLISM
  3. ZOLPIDEM [Concomitant]
     Active Substance: ZOLPIDEM TARTRATE
     Indication: ALCOHOLISM
  4. DIAZEPAM. [Concomitant]
     Active Substance: DIAZEPAM
     Indication: DEPRESSION
     Route: 065
  5. ESCITALOPRAM OXALATE - BP [Suspect]
     Active Substance: ESCITALOPRAM OXALATE
     Indication: ALCOHOLISM
  6. CARBAMAZEPINE. [Suspect]
     Active Substance: CARBAMAZEPINE
     Indication: DEPRESSION
     Route: 065
  7. AMOXICILLIN. [Suspect]
     Active Substance: AMOXICILLIN
     Indication: LYMPHADENOPATHY
  8. DIAZEPAM. [Concomitant]
     Active Substance: DIAZEPAM
     Indication: ALCOHOLISM
  9. ZOLPIDEM [Concomitant]
     Active Substance: ZOLPIDEM TARTRATE
     Indication: DEPRESSION
     Route: 065
  10. ESCITALOPRAM OXALATE - BP [Suspect]
     Active Substance: ESCITALOPRAM OXALATE
     Indication: DEPRESSION
     Route: 065
  11. AMOXICILLIN. [Suspect]
     Active Substance: AMOXICILLIN
     Indication: EAR PAIN
     Dosage: SELF ADMINISTERED
     Route: 065

REACTIONS (1)
  - Drug reaction with eosinophilia and systemic symptoms [Unknown]
